FAERS Safety Report 13414918 (Version 1)
Quarter: 2017Q2

REPORT INFORMATION
  Report Type: Spontaneous
  Country: US (occurrence: US)
  Receive Date: 20170407
  Receipt Date: 20170407
  Transmission Date: 20170830
  Serious: No
  Sender: FDA-Public Use
  Company Number: None

PATIENT
  Age: 79 Year
  Sex: Female

DRUGS (1)
  1. CAPECITABINE TAB 500MG [Suspect]
     Active Substance: CAPECITABINE
     Indication: COLON CANCER

REACTIONS (8)
  - Speech disorder [None]
  - Migraine [None]
  - Grip strength decreased [None]
  - Fatigue [None]
  - Visual impairment [None]
  - Dysphonia [None]
  - Confusional state [None]
  - Hypoaesthesia [None]

NARRATIVE: CASE EVENT DATE: 20170405
